FAERS Safety Report 23542629 (Version 1)
Quarter: 2024Q1

REPORT INFORMATION
  Report Type: Spontaneous
  Country: CN (occurrence: CN)
  Receive Date: 20240220
  Receipt Date: 20240220
  Transmission Date: 20240410
  Serious: Yes (Hospitalization)
  Sender: FDA-Public Use
  Company Number: CN-JNJFOC-20240222906

PATIENT
  Age: 47 Year
  Sex: Male

DRUGS (6)
  1. RISPERDAL [Suspect]
     Active Substance: RISPERIDONE
     Indication: Mental disorder
     Dosage: (2 MG ONCE EVERY MORNING, 1 MG ONCE EVERY NIGHT)
     Route: 048
  2. RISPERDAL [Suspect]
     Active Substance: RISPERIDONE
     Dosage: (2 MG ONCE EVERY MORNING, 2 MG ONCE EVERY NIGHT).
     Route: 048
  3. RISPERDAL [Suspect]
     Active Substance: RISPERIDONE
     Dosage: (2 MG ONCE EVERY MORNING, 1 MG ONCE EVERY NIGHT)
     Route: 048
  4. RISPERDAL [Suspect]
     Active Substance: RISPERIDONE
     Dosage: (1 MG ONCE EVERY MORNING, 1 MG ONCE EVERY NIGHT)
     Route: 048
  5. QUETIAPINE [Suspect]
     Active Substance: QUETIAPINE
     Indication: Mental disorder
     Dosage: (0.1 G ONCE EVERY NIGHT)
     Route: 065
  6. ARIPIPRAZOLE [Concomitant]
     Active Substance: ARIPIPRAZOLE
     Indication: Mental disorder
     Dosage: (5 MG/TIME, ONCE DAILY)
     Route: 065

REACTIONS (5)
  - Diplopia [Recovered/Resolved]
  - Dizziness [Recovered/Resolved]
  - Sinus bradycardia [Recovered/Resolved]
  - Hypotension [Recovered/Resolved]
  - Off label use [Unknown]

NARRATIVE: CASE EVENT DATE: 20220604
